FAERS Safety Report 23277944 (Version 1)
Quarter: 2023Q4

REPORT INFORMATION
  Report Type: Spontaneous
  Country: US (occurrence: US)
  Receive Date: 20231208
  Receipt Date: 20231208
  Transmission Date: 20240110
  Serious: Yes (Other)
  Sender: FDA-Public Use
  Company Number: US-FreseniusKabi-FK202320029

PATIENT
  Age: 25 Year
  Sex: Male

DRUGS (6)
  1. BLEOMYCIN [Suspect]
     Active Substance: BLEOMYCIN SULFATE
     Indication: Chemotherapy
  2. ETOPOSIDE [Suspect]
     Active Substance: ETOPOSIDE
     Indication: Chemotherapy
     Dosage: 1 CYCLE OF ETOPOSIDE
  3. ETOPOSIDE [Suspect]
     Active Substance: ETOPOSIDE
     Dosage: 3 CYCLES OF ETOPOSIDE WITH ISOFOSFAMIDE AND CISPLATIN
  4. CISPLATIN [Suspect]
     Active Substance: CISPLATIN
     Indication: Chemotherapy
     Dosage: 1 CYCLE OF CISPLATIN
  5. CISPLATIN [Suspect]
     Active Substance: CISPLATIN
     Dosage: 3 CYCLES OF CISPLATIN WITH ETOPOSIDE AND ISOFOSFAMIDE
  6. IFOSFAMIDE [Concomitant]
     Active Substance: IFOSFAMIDE
     Indication: Chemotherapy
     Dosage: 3 CYCLES OF ISOFOSFAMIDE WITH ETOPOSIDE AND CISPLATIN

REACTIONS (1)
  - Pulmonary toxicity [Unknown]
